FAERS Safety Report 15554942 (Version 1)
Quarter: 2018Q4

REPORT INFORMATION
  Report Type: Spontaneous
  Country: US (occurrence: US)
  Receive Date: 20181026
  Receipt Date: 20181026
  Transmission Date: 20190205
  Serious: Yes (Hospitalization)
  Sender: FDA-Public Use
  Company Number: US-ENDO PHARMACEUTICALS INC-2018-042537

PATIENT
  Age: 55 Year
  Sex: Male
  Weight: 97.05 kg

DRUGS (17)
  1. TESTOPEL [Suspect]
     Active Substance: TESTOSTERONE
     Dosage: 75 MG, EVERY 4 MONTHS
     Route: 058
     Dates: start: 20150410
  2. TESTOPEL [Suspect]
     Active Substance: TESTOSTERONE
     Dosage: 75 MG, EVERY 4 MONTHS (12 PELLETS PLACED)
     Route: 058
     Dates: start: 20161215
  3. NITROGLYCERIN. [Concomitant]
     Active Substance: NITROGLYCERIN
     Indication: PRODUCT USED FOR UNKNOWN INDICATION
     Dosage: 0.4 MG, PRN
     Route: 048
  4. DICLOFENAC SODIUM. [Concomitant]
     Active Substance: DICLOFENAC SODIUM
     Indication: PRODUCT USED FOR UNKNOWN INDICATION
     Dosage: 2 G, QID PRN
     Route: 061
  5. TESTOPEL [Suspect]
     Active Substance: TESTOSTERONE
     Indication: ANDROGEN REPLACEMENT THERAPY
     Dosage: 75 MG, EVERY 4 MONTHS
     Route: 058
     Dates: start: 20140310
  6. TESTOPEL [Suspect]
     Active Substance: TESTOSTERONE
     Dosage: 75 MG, EVERY 4 MONTHS
     Route: 058
     Dates: start: 20140721
  7. TESTOPEL [Suspect]
     Active Substance: TESTOSTERONE
     Dosage: 75 MG, EVERY 4 MONTHS (PLACED 12 PELLETS)
     Route: 058
     Dates: start: 20160705
  8. TESTIM [Suspect]
     Active Substance: TESTOSTERONE
     Indication: ANDROGEN REPLACEMENT THERAPY
     Dosage: 100 MG, DAILY (2 TUBES)
     Route: 065
  9. TRAZODONE [Concomitant]
     Active Substance: TRAZODONE HYDROCHLORIDE
     Indication: PRODUCT USED FOR UNKNOWN INDICATION
     Dosage: 50 MG, DAILY
     Route: 048
  10. TESTOPEL [Suspect]
     Active Substance: TESTOSTERONE
     Dosage: 75 MG PELLETS EVERY 4 MONTHS (12 PELLETS PLACED)
     Route: 058
     Dates: start: 20160205
  11. TESTOPEL [Suspect]
     Active Substance: TESTOSTERONE
     Dosage: 75 MG, EVERY 4 MONTHS (PLACED 12 PELLETS)
     Route: 058
     Dates: start: 20170410
  12. FORTESTA [Suspect]
     Active Substance: TESTOSTERONE
     Indication: ANDROGEN REPLACEMENT THERAPY
     Dosage: UNK UNKNOWN, UNKNOWN
     Route: 065
  13. METOPROLOL TARTRATE. [Concomitant]
     Active Substance: METOPROLOL TARTRATE
     Indication: PRODUCT USED FOR UNKNOWN INDICATION
     Dosage: 25 MG, BID
     Route: 048
  14. ASPIRIN                            /00002701/ [Concomitant]
     Active Substance: ASPIRIN
     Indication: PRODUCT USED FOR UNKNOWN INDICATION
     Dosage: 81 MG, DAILY
     Route: 048
  15. TESTOPEL [Suspect]
     Active Substance: TESTOSTERONE
     Dosage: 75 MG, EVERY 4 MONTHS (12 PELLETS PLACED)
     Route: 058
     Dates: start: 20150820
  16. TESTOPEL [Suspect]
     Active Substance: TESTOSTERONE
     Dosage: 75 MG, EVERY 4 MONTHS (12 PELLETS PLACED)
     Route: 058
     Dates: start: 20170810
  17. ENOXAPARIN [Concomitant]
     Active Substance: ENOXAPARIN
     Indication: PRODUCT USED FOR UNKNOWN INDICATION
     Dosage: 1 MG/KG, Q12H
     Route: 058

REACTIONS (3)
  - Rash [Unknown]
  - Acute coronary syndrome [Unknown]
  - Prescribed overdose [Unknown]

NARRATIVE: CASE EVENT DATE: 20140310
